FAERS Safety Report 4725547-X (Version None)
Quarter: 2005Q3

REPORT INFORMATION
  Report Type: 
  Country: None (occurrence: None)
  Receive Date: 20050727
  Receipt Date: 20050722
  Transmission Date: 20060218
  Serious: No
  Sender: FDA-Public Use
  Company Number: GB-BOEHRINGER INGELHEIM PHARMACEUTICALS, INC.-2005-UK-01354UK

PATIENT
  Age: 73 Year
  Sex: Female

DRUGS (9)
  1. SPIRIVA [Suspect]
     Indication: CHRONIC OBSTRUCTIVE PULMONARY DISEASE
     Route: 055
     Dates: start: 20050705, end: 20050715
  2. SPIRIVA [Suspect]
     Indication: ASTHMA
  3. LANSOPRAZOLE [Concomitant]
     Route: 048
     Dates: start: 20050301
  4. FUROSEMIDE [Concomitant]
     Dosage: 80 MG TWICE DAILY
     Route: 048
     Dates: start: 20050301
  5. LISINOPRIL [Concomitant]
     Route: 048
     Dates: start: 20050301
  6. SEREVENT [Concomitant]
     Indication: CHRONIC OBSTRUCTIVE PULMONARY DISEASE
     Route: 055
     Dates: start: 20050301
  7. SEREVENT [Concomitant]
     Indication: ASTHMA
  8. FLIXOTIDE [Concomitant]
     Route: 055
     Dates: start: 20050301
  9. ALLOPURINOL [Concomitant]
     Indication: GOUT
     Dosage: 100 MG TWICE DAILY
     Route: 048

REACTIONS (2)
  - CARDIAC FAILURE [None]
  - PULMONARY OEDEMA [None]
